FAERS Safety Report 10530065 (Version 1)
Quarter: 2014Q4

REPORT INFORMATION
  Report Type: Spontaneous
  Country: US (occurrence: None)
  Receive Date: 20141020
  Receipt Date: 20141020
  Transmission Date: 20150528
  Serious: Yes (Hospitalization)
  Sender: FDA-Public Use
  Company Number: None

PATIENT
  Age: 38 Year
  Sex: Male
  Weight: 70.31 kg

DRUGS (2)
  1. REMICADE [Suspect]
     Active Substance: INFLIXIMAB
     Indication: CROHN^S DISEASE
     Dosage: 1, EVERY 8 WEEKS, INTO A VEIN
     Dates: start: 20140923
  2. REMICADE [Suspect]
     Active Substance: INFLIXIMAB
     Indication: RHEUMATOID ARTHRITIS
     Dosage: 1, EVERY 8 WEEKS, INTO A VEIN
     Dates: start: 20140923

REACTIONS (2)
  - Infusion site cellulitis [None]
  - Sepsis [None]

NARRATIVE: CASE EVENT DATE: 20141001
